FAERS Safety Report 10361240 (Version 2)
Quarter: 2014Q3

REPORT INFORMATION
  Report Type: Spontaneous
  Country: US (occurrence: US)
  Receive Date: 20140804
  Receipt Date: 20140808
  Transmission Date: 20150326
  Serious: Yes (Other)
  Sender: FDA-Public Use
  Company Number: US-PFIZER INC-2014214987

PATIENT
  Age: 53 Year
  Sex: Female
  Weight: 70.3 kg

DRUGS (2)
  1. LETAIRIS [Concomitant]
     Active Substance: AMBRISENTAN
     Dosage: UNK
  2. REVATIO [Suspect]
     Active Substance: SILDENAFIL CITRATE
     Indication: PULMONARY ARTERIAL HYPERTENSION
     Dosage: 20 MG, 3X/DAY
     Route: 048
     Dates: start: 2012, end: 201407

REACTIONS (10)
  - Dyspnoea [Unknown]
  - Neoplasm malignant [Unknown]
  - Asthenia [Unknown]
  - Muscular weakness [Unknown]
  - Gait disturbance [Unknown]
  - Flatulence [Unknown]
  - Merycism [Unknown]
  - Malaise [Unknown]
  - Gout [Unknown]
  - Chest discomfort [Unknown]

NARRATIVE: CASE EVENT DATE: 201406
